FAERS Safety Report 5024863-4 (Version None)
Quarter: 2006Q2

REPORT INFORMATION
  Report Type: 
  Country: None (occurrence: None)
  Receive Date: 20060607
  Receipt Date: 20060522
  Transmission Date: 20061013
  Serious: Yes (Other)
  Sender: FDA-Public Use
  Company Number: JP200605002218

PATIENT
  Age: 49 Year
  Sex: Male
  Weight: 51 kg

DRUGS (11)
  1. HUMALOG MIX 75/25 [Suspect]
     Indication: DIABETES MELLITUS NON-INSULIN-DEPENDENT
     Dosage: SEE IMAGE
     Route: 058
     Dates: start: 20060221, end: 20060228
  2. HUMALOG MIX 75/25 [Suspect]
     Indication: DIABETES MELLITUS NON-INSULIN-DEPENDENT
     Dosage: SEE IMAGE
     Route: 058
     Dates: start: 20060301, end: 20060509
  3. HUMALOG MIX 25L/75PL PEN (HUMALOG MIX 25L/75NPL PEN) PEN, DISPOSABLE [Concomitant]
  4. MAGNESIUM OXIDE (MAGNESIUM OXIDE) POWDER [Concomitant]
  5. PURSENNID (SENNA LEAF) TABLET [Concomitant]
  6. GASMOTIN (MOSAPRIDE CITRATE) TABLET [Concomitant]
  7. MUCOSTA (REBAMIPIDE) CAPSULE [Concomitant]
  8. GASTER (FAMOTIDINE) TABLET [Concomitant]
  9. MEXITIL [Concomitant]
  10. EPALRESTAT EPALRESTAT) TABLET [Concomitant]
  11. METHYCOBAL (MECOBALAMIN) TABLET [Concomitant]

REACTIONS (2)
  - INJECTION SITE URTICARIA [None]
  - VOMITING [None]
